FAERS Safety Report 9246113 (Version 3)
Quarter: 2013Q2

REPORT INFORMATION
  Report Type: Spontaneous
  Country: GB (occurrence: GB)
  Receive Date: 20130422
  Receipt Date: 20130626
  Transmission Date: 20140414
  Serious: Yes (Other)
  Sender: FDA-Public Use
  Company Number: GB-TEVA-397737ISR

PATIENT
  Age: 39 Year
  Sex: Female

DRUGS (4)
  1. BACLOFEN [Suspect]
     Indication: MUSCLE SPASTICITY
     Dates: start: 200809
  2. BACLOFEN [Suspect]
     Dates: start: 2007
  3. GILENYA [Suspect]
     Indication: RELAPSING-REMITTING MULTIPLE SCLEROSIS
     Dosage: .5 MILLIGRAM DAILY;
     Route: 048
     Dates: start: 20121017
  4. PREGABALIN [Concomitant]
     Indication: NEURALGIA
     Route: 048
     Dates: start: 200908

REACTIONS (1)
  - Lower respiratory tract infection [Recovered/Resolved]
